FAERS Safety Report 10963501 (Version 1)
Quarter: 2015Q1

REPORT INFORMATION
  Report Type: Spontaneous
  Country: US (occurrence: None)
  Receive Date: 20150226
  Receipt Date: 20150226
  Transmission Date: 20150721
  Serious: No
  Sender: FDA-Public Use
  Company Number: TPA2009A03268

PATIENT
  Age: 41 Year
  Sex: Female
  Weight: 75.2 kg

DRUGS (11)
  1. CALOMIST (CYANOCOBALAMIN) [Concomitant]
  2. COMBIVENT (IPRATROPIUM BROMIDE) [Concomitant]
  3. VICODIN EXTRA STRENGTH (PARACETAMOL, HYDROCODONE BITARTRATE) [Concomitant]
  4. ARAVA [Concomitant]
     Active Substance: LEFLUNOMIDE
  5. LEVEQUIN (LEVOFLOXACIN) [Concomitant]
  6. PEPCID OTC (FAMOTIDINE) [Concomitant]
  7. ULORIC [Suspect]
     Active Substance: FEBUXOSTAT
     Indication: GOUT
     Dosage: 1 IN 1 D
     Route: 048
     Dates: start: 20091014
  8. SYMBICORT (BUDESONIDE) [Concomitant]
  9. SPIRIVA (TIOTROPIUM BROMIDE) [Concomitant]
  10. COUMADIN [Concomitant]
     Active Substance: WARFARIN SODIUM
  11. AMARYL [Concomitant]
     Active Substance: GLIMEPIRIDE

REACTIONS (3)
  - Abdominal pain upper [None]
  - Condition aggravated [None]
  - Arthralgia [None]

NARRATIVE: CASE EVENT DATE: 20091014
